FAERS Safety Report 14695941 (Version 1)
Quarter: 2018Q1

REPORT INFORMATION
  Report Type: Spontaneous
  Country: GB (occurrence: US)
  Receive Date: 20180329
  Receipt Date: 20180329
  Transmission Date: 20180509
  Serious: Yes (Other)
  Sender: FDA-Public Use
  Company Number: GB-BAYER-2018-060465

PATIENT
  Age: 27 Year
  Sex: Female

DRUGS (3)
  1. VIIBRYD [Concomitant]
     Active Substance: VILAZODONE HYDROCHLORIDE
     Dosage: 40 MG, QD
     Dates: start: 201802
  2. MIRENA [Suspect]
     Active Substance: LEVONORGESTREL
     Indication: CONTRACEPTION
     Dosage: 20 MCG/24HR, CONT
     Route: 015
     Dates: start: 20180206, end: 20180322
  3. MIRENA [Suspect]
     Active Substance: LEVONORGESTREL
     Indication: CONTRACEPTION
     Dosage: UNK

REACTIONS (2)
  - Genital haemorrhage [Not Recovered/Not Resolved]
  - Device dislocation [Recovering/Resolving]

NARRATIVE: CASE EVENT DATE: 20180206
